FAERS Safety Report 15747440 (Version 2)
Quarter: 2019Q1

REPORT INFORMATION
  Report Type: Spontaneous
  Country: US (occurrence: US)
  Receive Date: 20181220
  Receipt Date: 20190226
  Transmission Date: 20190417
  Serious: Yes (Other)
  Sender: FDA-Public Use
  Company Number: US-TAKEDA-2018TUS035761

PATIENT
  Age: 35 Year
  Sex: Male
  Weight: 113.38 kg

DRUGS (6)
  1. PREDNISONE. [Concomitant]
     Active Substance: PREDNISONE
     Dosage: UNK
     Dates: start: 20180125
  2. PREDNISONE. [Concomitant]
     Active Substance: PREDNISONE
     Dosage: UNK
     Dates: start: 20180409
  3. ENTYVIO [Suspect]
     Active Substance: VEDOLIZUMAB
     Indication: COLITIS ULCERATIVE
     Dosage: 300 MILLIGRAM
     Route: 042
     Dates: start: 20180504
  4. ASACOL [Concomitant]
     Active Substance: MESALAMINE
     Dosage: 80 MILLIGRAM, TID
     Dates: start: 20180118
  5. UCERIS [Concomitant]
     Active Substance: BUDESONIDE
     Dosage: 9 MILLIGRAM, QD
     Dates: start: 20180409, end: 201806
  6. SULFASALAZINE. [Concomitant]
     Active Substance: SULFASALAZINE
     Dosage: 500 MILLIGRAM, TID
     Dates: start: 20180117, end: 201806

REACTIONS (11)
  - Loss of consciousness [Unknown]
  - Colitis ulcerative [Unknown]
  - Musculoskeletal chest pain [Unknown]
  - Fatigue [Unknown]
  - Headache [Unknown]
  - Tongue ulceration [Unknown]
  - Vision blurred [Unknown]
  - Therapeutic reaction time decreased [Unknown]
  - Asthenopia [Unknown]
  - Extraocular muscle disorder [Unknown]
  - Insomnia [Unknown]

NARRATIVE: CASE EVENT DATE: 20181209
